FAERS Safety Report 12450414 (Version 2)
Quarter: 2016Q2

REPORT INFORMATION
  Report Type: Spontaneous
  Country: DE (occurrence: DE)
  Receive Date: 20160609
  Receipt Date: 20160615
  Transmission Date: 20160815
  Serious: Yes (Hospitalization)
  Sender: FDA-Public Use
  Company Number: DE-ASTRAZENECA-2016SE60322

PATIENT
  Age: 65 Year
  Sex: Male

DRUGS (37)
  1. DIAZEPAM. [Suspect]
     Active Substance: DIAZEPAM
     Dosage: 20.0MG UNKNOWN
     Route: 048
     Dates: start: 20140325
  2. QUILONUM RETARD [Suspect]
     Active Substance: LITHIUM CARBONATE
     Dosage: 450-900 MG
     Route: 048
  3. QUILONUM RETARD [Suspect]
     Active Substance: LITHIUM CARBONATE
     Route: 048
     Dates: start: 20140322, end: 20140327
  4. MAGNESIUM [Concomitant]
     Active Substance: MAGNESIUM
     Dosage: 2.0DF UNKNOWN
     Dates: start: 20140323, end: 20140405
  5. DIAZEPAM. [Suspect]
     Active Substance: DIAZEPAM
     Dosage: 20.0MG UNKNOWN
     Route: 048
     Dates: start: 20140320
  6. QUILONUM RETARD [Suspect]
     Active Substance: LITHIUM CARBONATE
     Route: 048
  7. SEROQUEL XR [Suspect]
     Active Substance: QUETIAPINE FUMARATE
     Route: 048
  8. SEROQUEL XR [Suspect]
     Active Substance: QUETIAPINE FUMARATE
     Route: 048
  9. DIAZEPAM. [Suspect]
     Active Substance: DIAZEPAM
     Dosage: 25.0MG UNKNOWN
     Route: 048
     Dates: start: 20140321, end: 20140322
  10. DIAZEPAM. [Suspect]
     Active Substance: DIAZEPAM
     Dosage: 35.0MG UNKNOWN
     Route: 048
     Dates: start: 20140323
  11. FLUNITRAZEPAM [Suspect]
     Active Substance: FLUNITRAZEPAM
     Route: 048
     Dates: start: 20140324, end: 20140405
  12. HALOPERIDOL. [Suspect]
     Active Substance: HALOPERIDOL
     Route: 048
     Dates: start: 20140324, end: 20140402
  13. QUILONUM RETARD [Suspect]
     Active Substance: LITHIUM CARBONATE
     Dosage: 900 MG INSTEAD OF 450 MG
     Route: 048
  14. SPIRONOLACTON [Concomitant]
     Active Substance: SPIRONOLACTONE
     Route: 048
     Dates: start: 2012
  15. TAMSULOSIN [Concomitant]
     Active Substance: TAMSULOSIN
     Route: 048
     Dates: start: 2012
  16. NEURO [Concomitant]
     Route: 048
     Dates: start: 20140323, end: 20140405
  17. SEROQUEL XR [Suspect]
     Active Substance: QUETIAPINE FUMARATE
     Route: 048
     Dates: start: 20140321
  18. FLUNITRAZEPAM [Suspect]
     Active Substance: FLUNITRAZEPAM
     Route: 048
     Dates: start: 20140321, end: 20140323
  19. HALOPERIDOL. [Suspect]
     Active Substance: HALOPERIDOL
     Route: 048
     Dates: start: 20140405, end: 20140406
  20. SEROQUEL XR [Suspect]
     Active Substance: QUETIAPINE FUMARATE
     Route: 048
     Dates: start: 20140320
  21. SEROQUEL XR [Suspect]
     Active Substance: QUETIAPINE FUMARATE
     Route: 048
     Dates: start: 20140322
  22. DIAZEPAM. [Suspect]
     Active Substance: DIAZEPAM
     Dosage: 15.0MG UNKNOWN
     Route: 048
     Dates: start: 20140318, end: 20140319
  23. FLUPHENAZIN [Suspect]
     Active Substance: FLUPHENAZINE
     Dosage: 25 MG MILLIGRAM(S) EVERY 14 DAY
     Route: 030
     Dates: start: 20140328
  24. QUILONUM RETARD [Suspect]
     Active Substance: LITHIUM CARBONATE
     Route: 048
     Dates: start: 20140310, end: 20140321
  25. TORASEMIDE [Concomitant]
     Active Substance: TORSEMIDE
     Route: 048
  26. EUTHYROX [Concomitant]
     Active Substance: LEVOTHYROXINE SODIUM
     Route: 048
  27. ASPIRIN. [Concomitant]
     Active Substance: ASPIRIN
     Route: 048
  28. CLOPIXOL ACUPHASE [Concomitant]
  29. DIAZEPAM. [Suspect]
     Active Substance: DIAZEPAM
     Dosage: 10.0MG UNKNOWN
     Route: 048
  30. DIAZEPAM. [Suspect]
     Active Substance: DIAZEPAM
     Dosage: 30.0MG UNKNOWN
     Route: 048
     Dates: start: 20140324
  31. FLUPHENAZIN [Suspect]
     Active Substance: FLUPHENAZINE
     Dosage: 25 MG MILLIGRAM(S) EVERY 14 DAY
     Route: 030
     Dates: start: 20130317
  32. HALOPERIDOL. [Suspect]
     Active Substance: HALOPERIDOL
     Route: 048
     Dates: start: 20140404, end: 20140404
  33. RAMIPRIL. [Concomitant]
     Active Substance: RAMIPRIL
     Route: 048
     Dates: start: 2010
  34. SEROQUEL XR [Suspect]
     Active Substance: QUETIAPINE FUMARATE
     Route: 048
     Dates: start: 20140310, end: 20140319
  35. FLUPHENAZIN [Suspect]
     Active Substance: FLUPHENAZINE
     Dosage: 25 MG MILLIGRAM(S) EVERY 14 DAY
     Route: 030
     Dates: start: 20140311
  36. ZUCLOPENTHIXOL ACETATE [Suspect]
     Active Substance: ZUCLOPENTHIXOL ACETATE
     Dosage: 150.0MG UNKNOWN
     Route: 030
     Dates: start: 20140325
  37. METFORMIN [Concomitant]
     Active Substance: METFORMIN HYDROCHLORIDE
     Dosage: 2000 MG MILLIGRAM(S) EVERY DAY
     Route: 048
     Dates: start: 2012

REACTIONS (3)
  - Salivary hypersecretion [Unknown]
  - Dysarthria [Unknown]
  - Mania [Unknown]

NARRATIVE: CASE EVENT DATE: 20140325
